FAERS Safety Report 4496073-0 (Version None)
Quarter: 2004Q4

REPORT INFORMATION
  Report Type: 
  Country: None (occurrence: None)
  Receive Date: 20041108
  Receipt Date: 20041029
  Transmission Date: 20050328
  Serious: Yes (Disabling)
  Sender: FDA-Public Use
  Company Number: US-MERCK-0411USA00015

PATIENT
  Age: 84 Year
  Sex: Female

DRUGS (7)
  1. ZOCOR [Suspect]
     Indication: BLOOD CHOLESTEROL INCREASED
     Route: 048
     Dates: start: 19950101
  2. DILTIAZEM HYDROCHLORIDE [Concomitant]
     Route: 065
  3. TOPROL-XL [Concomitant]
     Route: 065
  4. COUMADIN [Concomitant]
     Route: 065
  5. FUROSEMIDE [Concomitant]
     Route: 065
  6. SYNTHROID [Concomitant]
     Route: 065
  7. VIACTIV SOFT CALCIUM CHEWS [Concomitant]
     Route: 065

REACTIONS (1)
  - BALANCE DISORDER [None]
